FAERS Safety Report 10135480 (Version 1)
Quarter: 2014Q2

REPORT INFORMATION
  Report Type: Spontaneous
  Country: CA (occurrence: CA)
  Receive Date: 20140428
  Receipt Date: 20140428
  Transmission Date: 20141212
  Serious: Yes (Death, Other)
  Sender: FDA-Public Use
  Company Number: CA-PFIZER INC-2014111463

PATIENT
  Age: 79 Year
  Sex: Female
  Weight: 67 kg

DRUGS (13)
  1. IBUPROFEN [Suspect]
     Dosage: 400 MG, AS NEEDED
  2. IBUPROFEN [Suspect]
     Dosage: UNK
  3. RIVAROXABAN [Suspect]
     Dosage: 10 MG, 1X/DAY
  4. ATENOLOL [Concomitant]
     Dosage: UNK
  5. FISH OIL [Concomitant]
     Dosage: UNK
  6. FOLIC ACID [Concomitant]
     Dosage: UNK
  7. FRAGMIN [Concomitant]
     Dosage: UNK
  8. IRON [Concomitant]
     Dosage: UNK
  9. METHOTREXATE [Concomitant]
     Dosage: UNK
  10. MULTIVITAMINS [Concomitant]
     Dosage: UNK
  11. SIMVASTATIN [Concomitant]
     Dosage: UNK
  12. TRIAMTERENE [Concomitant]
     Dosage: UNK
  13. VITAMIN D [Concomitant]
     Dosage: UNK

REACTIONS (5)
  - Haematemesis [Fatal]
  - Haemoglobin decreased [Fatal]
  - Melaena [Fatal]
  - Syncope [Fatal]
  - Unresponsive to stimuli [Fatal]
